FAERS Safety Report 23392291 (Version 1)
Quarter: 2024Q1

REPORT INFORMATION
  Report Type: Spontaneous
  Country: US (occurrence: US)
  Receive Date: 20240111
  Receipt Date: 20240111
  Transmission Date: 20240410
  Serious: No
  Sender: FDA-Public Use
  Company Number: US-BRISTOL-MYERS SQUIBB COMPANY-2024-005319

PATIENT
  Age: 86 Year

DRUGS (2)
  1. ABRAXANE [Suspect]
     Active Substance: PACLITAXEL
     Indication: Retroperitoneal cancer
     Dosage: FREQ : EVERY DAYS 1,8,15 IN A 28 DAY CYCLE
  2. ABRAXANE [Suspect]
     Active Substance: PACLITAXEL
     Dosage: FREQ : EVERY DAYS 1,8,15 IN A 28 DAY CYCLE

REACTIONS (1)
  - Off label use [Unknown]
